FAERS Safety Report 7486949-4 (Version None)
Quarter: 2011Q2

REPORT INFORMATION
  Report Type: 
  Country: None (occurrence: None)
  Receive Date: 20110517
  Receipt Date: 20100802
  Transmission Date: 20111010
  Serious: No
  Sender: FDA-Public Use
  Company Number: US-AMGEN-KDL428517

PATIENT
  Sex: Female

DRUGS (5)
  1. LEUCOVORIN CALCIUM [Concomitant]
     Dosage: UNK UNK, UNK
     Dates: end: 20100726
  2. IRINOTECAN HYDROCHLORIDE [Concomitant]
     Dosage: UNK UNK, UNK
     Dates: end: 20100726
  3. NEULASTA [Suspect]
     Indication: CHEMOTHERAPY
     Dosage: UNK UNK, UNK
     Dates: start: 20100728, end: 20100728
  4. FLUOROURACIL [Concomitant]
     Dosage: UNK UNK, UNK
  5. BEVACIZUMAB [Concomitant]
     Dosage: UNK UNK, UNK
     Dates: end: 20100726

REACTIONS (3)
  - MUSCLE SPASMS [None]
  - ARTHRALGIA [None]
  - PAIN [None]
